FAERS Safety Report 7424188-3 (Version None)
Quarter: 2011Q2

REPORT INFORMATION
  Report Type: 
  Country: None (occurrence: None)
  Receive Date: 20110419
  Receipt Date: 20110411
  Transmission Date: 20111010
  Serious: Yes (Life-Threatening, Hospitalization)
  Sender: FDA-Public Use
  Company Number: FR-MERCK-1104FRA00057

PATIENT
  Age: 52 Year
  Sex: Male

DRUGS (57)
  1. VINCRISTINE SULFATE [Suspect]
     Route: 042
     Dates: start: 20100816, end: 20100816
  2. VALACYCLOVIR HYDROCHLORIDE [Suspect]
     Route: 048
     Dates: start: 20100813, end: 20100818
  3. AZTREONAM [Concomitant]
     Route: 051
     Dates: start: 20100813, end: 20100821
  4. EMEND [Suspect]
     Indication: PROPHYLAXIS OF NAUSEA AND VOMITING
     Route: 048
     Dates: start: 20100809, end: 20100820
  5. DAUNORUBICIN HCL [Suspect]
     Route: 042
     Dates: start: 20100823, end: 20100824
  6. VINCRISTINE SULFATE [Suspect]
     Route: 042
     Dates: start: 20100830, end: 20100830
  7. PHLOROGLUCINOL AND TRIMETHYLPHLOROGLUCINOL [Concomitant]
     Route: 042
     Dates: start: 20100804, end: 20101001
  8. CLORAZEPATE DIPOTASSIUM [Concomitant]
     Route: 048
     Dates: start: 20100828, end: 20100829
  9. ALUMINUM HYDROXIDE AND MAGNESIUM TRISILICATE [Concomitant]
     Route: 048
     Dates: start: 20101017
  10. OXYCODONE HYDROCHLORIDE [Concomitant]
     Route: 042
     Dates: start: 20100901, end: 20100905
  11. PREDNISONE [Suspect]
     Route: 048
     Dates: start: 20100809, end: 20100822
  12. AMPHOTERICIN B AND CHOLESTEROL AND DISTEAROYLPHOSPHATIDYLGLYCEROL AND [Suspect]
     Route: 042
     Dates: start: 20100813, end: 20100914
  13. VANCOMYCIN [Suspect]
     Route: 042
     Dates: start: 20100813, end: 20100817
  14. ALPRAZOLAM [Concomitant]
     Route: 048
     Dates: start: 20100814, end: 20100828
  15. SCOPOLAMINE [Concomitant]
     Route: 065
     Dates: start: 20100901, end: 20100910
  16. OXAZEPAM [Concomitant]
     Route: 048
     Dates: end: 20100911
  17. OXAZEPAM [Concomitant]
     Route: 065
     Dates: start: 20101017
  18. TRAMADOL HYDROCHLORIDE [Concomitant]
     Route: 042
     Dates: start: 20100801, end: 20101024
  19. ASPARAGINASE (AS DRUG) [Suspect]
     Indication: ACUTE LYMPHOCYTIC LEUKAEMIA
     Route: 042
     Dates: start: 20100809, end: 20100906
  20. OMEPRAZOLE [Suspect]
     Route: 042
     Dates: start: 20100803, end: 20100910
  21. METOCLOPRAMIDE HYDROCHLORIDE [Concomitant]
     Route: 042
     Dates: start: 20100827, end: 20100910
  22. INSULIN LISPRO [Concomitant]
     Route: 065
     Dates: end: 20100823
  23. INSULIN DETEMIR [Concomitant]
     Route: 058
     Dates: start: 20101001, end: 20101022
  24. NEFOPAM HYDROCHLORIDE [Concomitant]
     Route: 042
     Dates: start: 20100804
  25. ZOLPIDEM TARTRATE [Concomitant]
     Route: 048
     Dates: end: 20100910
  26. PENTAMIDINE ISETHIONATE [Concomitant]
     Route: 055
     Dates: start: 20100812, end: 20100812
  27. HYDROXYZINE HYDROCHLORIDE [Concomitant]
     Route: 042
     Dates: start: 20100805, end: 20100805
  28. METHYLPREDNISOLONE ACETATE [Suspect]
     Route: 051
     Dates: start: 20100809, end: 20100826
  29. DAUNORUBICIN HCL [Suspect]
     Indication: ACUTE LYMPHOCYTIC LEUKAEMIA
     Route: 042
     Dates: start: 20100809, end: 20100811
  30. VANCOMYCIN [Suspect]
     Route: 042
     Dates: start: 20100804, end: 20100805
  31. ACYCLOVIR [Suspect]
     Route: 042
     Dates: start: 20100818, end: 20100908
  32. INSULIN GLARGINE [Concomitant]
     Route: 058
  33. INSULIN DETEMIR [Concomitant]
     Route: 058
     Dates: start: 20101023, end: 20101109
  34. FUROSEMIDE [Concomitant]
     Route: 042
     Dates: start: 20100909, end: 20100910
  35. PENTAMIDINE ISETHIONATE [Concomitant]
     Route: 055
     Dates: start: 20100825, end: 20100825
  36. RASBURICASE [Concomitant]
     Route: 042
     Dates: start: 20100805, end: 20100806
  37. PREDNISONE [Suspect]
     Indication: ACUTE LYMPHOCYTIC LEUKAEMIA
     Route: 048
     Dates: start: 20100802, end: 20100808
  38. CYCLOPHOSPHAMIDE [Suspect]
     Indication: ACUTE LYMPHOCYTIC LEUKAEMIA
     Route: 042
     Dates: start: 20100809, end: 20100809
  39. VINCRISTINE SULFATE [Suspect]
     Indication: ACUTE LYMPHOCYTIC LEUKAEMIA
     Route: 042
     Dates: start: 20100809, end: 20100809
  40. VINCRISTINE SULFATE [Suspect]
     Route: 042
     Dates: start: 20100823, end: 20100823
  41. METHOTREXATE [Suspect]
     Route: 051
     Dates: start: 20100802, end: 20100826
  42. CYTARABINE [Suspect]
     Route: 051
     Dates: start: 20100809, end: 20100826
  43. CLORAZEPATE DIPOTASSIUM [Concomitant]
     Route: 048
     Dates: start: 20100804, end: 20100812
  44. ALUMINUM HYDROXIDE AND MAGNESIUM TRISILICATE [Concomitant]
     Route: 048
     Dates: start: 20100814, end: 20100819
  45. INSULIN LISPRO [Concomitant]
     Route: 065
     Dates: start: 20101001
  46. INSULIN, NEUTRAL [Concomitant]
     Route: 042
     Dates: start: 20100908, end: 20100930
  47. OXYCODONE HYDROCHLORIDE [Concomitant]
     Route: 042
     Dates: start: 20100906, end: 20100908
  48. CYCLOPHOSPHAMIDE [Suspect]
     Route: 042
     Dates: start: 20100823, end: 20100826
  49. INSULIN DETEMIR [Concomitant]
     Route: 058
     Dates: start: 20101110
  50. OXYCODONE HYDROCHLORIDE [Concomitant]
     Route: 042
     Dates: start: 20100821, end: 20100831
  51. VANCOMYCIN [Suspect]
     Route: 042
     Dates: start: 20100818, end: 20100910
  52. METOCLOPRAMIDE HYDROCHLORIDE [Concomitant]
     Route: 042
     Dates: start: 20100920, end: 20100921
  53. ONDANSETRON HYDROCHLORIDE [Concomitant]
     Route: 042
     Dates: start: 20100809, end: 20100811
  54. ONDANSETRON HYDROCHLORIDE [Concomitant]
     Route: 042
     Dates: start: 20100816, end: 20100816
  55. ONDANSETRON HYDROCHLORIDE [Concomitant]
     Route: 042
     Dates: start: 20100823, end: 20100826
  56. LENOGRASTIM [Concomitant]
     Route: 058
     Dates: start: 20100826, end: 20100910
  57. RASBURICASE [Concomitant]
     Route: 042
     Dates: start: 20100802, end: 20100803

REACTIONS (23)
  - LEUKOPENIA [None]
  - ACINETOBACTER INFECTION [None]
  - BLOOD BILIRUBIN UNCONJUGATED INCREASED [None]
  - BLOOD BILIRUBIN INCREASED [None]
  - ANAEMIA [None]
  - BLOOD GLUCOSE DECREASED [None]
  - HYPOPHOSPHATAEMIA [None]
  - BLOOD LACTATE DEHYDROGENASE INCREASED [None]
  - ALANINE AMINOTRANSFERASE INCREASED [None]
  - GAMMA-GLUTAMYLTRANSFERASE INCREASED [None]
  - JAUNDICE [None]
  - ASPARTATE AMINOTRANSFERASE INCREASED [None]
  - PORTAL HYPERTENSION [None]
  - DIABETES MELLITUS INADEQUATE CONTROL [None]
  - DIABETES WITH HYPEROSMOLARITY [None]
  - BLOOD ALKALINE PHOSPHATASE INCREASED [None]
  - SEPSIS [None]
  - CHOLESTASIS [None]
  - VANISHING BILE DUCT SYNDROME [None]
  - THROMBOCYTOPENIA [None]
  - HYPONATRAEMIA [None]
  - HEPATIC PAIN [None]
  - CHOLECYSTITIS ACUTE [None]
